FAERS Safety Report 14955681 (Version 1)
Quarter: 2018Q2

REPORT INFORMATION
  Report Type: Spontaneous
  Country: FR (occurrence: FR)
  Receive Date: 20180531
  Receipt Date: 20180531
  Transmission Date: 20180711
  Serious: Yes (Hospitalization)
  Sender: FDA-Public Use
  Company Number: FR-TEVA-2018-FR-899676

PATIENT
  Age: 74 Year
  Sex: Female

DRUGS (3)
  1. CLARITHROMYCINE [Suspect]
     Active Substance: CLARITHROMYCIN
     Indication: INFECTION
     Route: 065
     Dates: start: 201712
  2. NEO-MERCAZOLE [Suspect]
     Active Substance: CARBIMAZOLE
     Indication: THYROID DISORDER
     Route: 065
     Dates: end: 201803
  3. ZYVOXID [Suspect]
     Active Substance: LINEZOLID
     Indication: INFECTION
     Route: 065
     Dates: start: 201801

REACTIONS (1)
  - Cholestasis [Recovering/Resolving]

NARRATIVE: CASE EVENT DATE: 201803
